FAERS Safety Report 23669205 (Version 1)
Quarter: 2024Q1

REPORT INFORMATION
  Report Type: Spontaneous
  Country: US (occurrence: None)
  Receive Date: 20240322
  Receipt Date: 20240322
  Transmission Date: 20240410
  Serious: Yes (Hospitalization)
  Sender: FDA-Public Use
  Company Number: None

PATIENT
  Age: 80 Year
  Sex: Female
  Weight: 68.04 kg

DRUGS (15)
  1. IRINOTECAN HYDROCHLORIDE [Suspect]
     Active Substance: IRINOTECAN HYDROCHLORIDE
     Indication: Cholangiocarcinoma
     Dosage: FREQUENCY : EVERY OTHER WEEK;?
     Route: 042
     Dates: start: 20240222, end: 20240318
  2. FLUOROURACIL [Suspect]
     Active Substance: FLUOROURACIL
  3. LEUCOVORIN [Suspect]
     Active Substance: LEUCOVORIN\LEUCOVORIN CALCIUM
  4. TYLENOL [Concomitant]
     Active Substance: ACETAMINOPHEN
  5. VITAMIN C [Concomitant]
     Active Substance: ASCORBIC ACID
  6. ATORVASTATIN [Concomitant]
     Active Substance: ATORVASTATIN
  7. VITAMIN D3 [Concomitant]
     Active Substance: CHOLECALCIFEROL
  8. VITAMIN B12 [Concomitant]
     Active Substance: CYANOCOBALAMIN
  9. LINZESS [Concomitant]
     Active Substance: LINACLOTIDE
  10. VITAMINS [Concomitant]
     Active Substance: VITAMINS
  11. ONDANSETRON [Concomitant]
     Active Substance: ONDANSETRON
  12. PROTONIX [Concomitant]
     Active Substance: PANTOPRAZOLE SODIUM
  13. SENNOSIDES [Concomitant]
     Active Substance: SENNOSIDES
  14. SUCRALFATE [Concomitant]
     Active Substance: SUCRALFATE
  15. GARLIC [Concomitant]
     Active Substance: GARLIC

REACTIONS (5)
  - Nausea [None]
  - Anaemia [None]
  - Hyponatraemia [None]
  - Blood bilirubin increased [None]
  - Decreased appetite [None]

NARRATIVE: CASE EVENT DATE: 20240318
